FAERS Safety Report 21393298 (Version 1)
Quarter: 2022Q3

REPORT INFORMATION
  Report Type: Spontaneous
  Country: CN (occurrence: CN)
  Receive Date: 20220929
  Receipt Date: 20220929
  Transmission Date: 20221027
  Serious: Yes (Hospitalization, Other)
  Sender: FDA-Public Use
  Company Number: CN-009507513-2209CHN010657

PATIENT
  Age: 66 Year
  Sex: Female
  Weight: 48 kg

DRUGS (2)
  1. KEYTRUDA [Suspect]
     Active Substance: PEMBROLIZUMAB
     Indication: Colon cancer recurrent
     Dosage: 200 MG, EVERY 22 DAYS (Q22D)
     Route: 041
     Dates: start: 20211229, end: 20220831
  2. SODIUM CHLORIDE [Concomitant]
     Active Substance: SODIUM CHLORIDE
     Indication: Medication dilution
     Dosage: 100 ML, Q22D
     Dates: start: 20211229, end: 20220831

REACTIONS (2)
  - Arrhythmia [Unknown]
  - Product use issue [Unknown]

NARRATIVE: CASE EVENT DATE: 20211229
